FAERS Safety Report 24991841 (Version 1)
Quarter: 2025Q1

REPORT INFORMATION
  Report Type: Report from Study
  Country: US (occurrence: US)
  Receive Date: 20250220
  Receipt Date: 20250220
  Transmission Date: 20250409
  Serious: Yes (Other)
  Sender: UCB
  Company Number: US-UCBSA-2025009297

PATIENT
  Age: 4 Year
  Sex: Male
  Weight: 13.6 kg

DRUGS (1)
  1. FINTEPLA [Suspect]
     Active Substance: FENFLURAMINE
     Indication: Severe myoclonic epilepsy of infancy
     Dates: start: 20241211

REACTIONS (1)
  - Pulmonary valve incompetence [Unknown]

NARRATIVE: CASE EVENT DATE: 20250129
